FAERS Safety Report 4824019-1 (Version None)
Quarter: 2005Q4

REPORT INFORMATION
  Report Type: 
  Country: None (occurrence: None)
  Receive Date: 20051108
  Receipt Date: 20051107
  Transmission Date: 20060501
  Serious: Yes (Disabling)
  Sender: FDA-Public Use
  Company Number: TCI2005A04374

PATIENT
  Age: 78 Year
  Sex: Male

DRUGS (1)
  1. LEUPROLIDE ACETATE [Suspect]
     Indication: PROSTATE CANCER
     Dosage: 3.75 MG (3.75 MG, 1 IN 28 D), SUBCUTANEOUS
     Route: 058
     Dates: start: 20050901, end: 20050901

REACTIONS (1)
  - VISUAL FIELD DEFECT [None]
